FAERS Safety Report 9518279 (Version 1)
Quarter: 2013Q1

REPORT INFORMATION
  Report Type: Spontaneous
  Country: US (occurrence: None)
  Receive Date: 20130305
  Receipt Date: 20130305
  Transmission Date: 20140127
  Serious: Yes (Hospitalization)
  Sender: FDA-Public Use
  Company Number: 163-21880-12080996

PATIENT
  Age: 60 Year
  Sex: Male
  Weight: 90.72 kg

DRUGS (9)
  1. REVLIMID [Suspect]
     Indication: MYELODYSPLASTIC SYNDROME
     Dosage: 10 MG, 1 IN 1 D, PO
     Route: 048
     Dates: start: 200705, end: 201207
  2. AMBIEN (ZOLPIDEM TARTRATE) (UNKNOWN) [Concomitant]
  3. ASPIRIN (ACETYLSALICYLIC ACID) (UNKNOWN) (ACETYLSALICYLIC ACID) [Concomitant]
  4. ATENOLOL (ATENOLOL) (UNKNOWN) [Concomitant]
  5. NEXIUM (ESMEPRAZOLE) (UNKNOWN) [Concomitant]
  6. PERCOCET (OXYCOCET) (UNKNOWN) [Concomitant]
  7. PLAVIX (CLOPIDOGREL SULFATE) (UNKNOWN) [Concomitant]
  8. SIMVASTATIN [Concomitant]
  9. XANAX (ALPRAZOLAM) (UNKNOWN) [Concomitant]

REACTIONS (2)
  - Pneumonia [None]
  - Hypotension [None]
